FAERS Safety Report 4405294-4 (Version None)
Quarter: 2004Q3

REPORT INFORMATION
  Report Type: 
  Country: None (occurrence: None)
  Receive Date: 20040716
  Receipt Date: 20040705
  Transmission Date: 20050211
  Serious: Yes (Hospitalization)
  Sender: FDA-Public Use
  Company Number: S04-FRA-02922-01

PATIENT
  Age: 85 Year
  Sex: Male

DRUGS (9)
  1. MEMANTINE HCL [Suspect]
  2. DIGOXIN [Suspect]
  3. LASIX [Concomitant]
     Dosage: 20 MG QD PO
     Route: 048
  4. ASPIRIN [Suspect]
     Dosage: 75 MG QD PO
     Route: 048
  5. EXELON [Suspect]
     Dosage: 6 MG BID PO
     Route: 048
  6. ENALAPRIL MALEATE [Suspect]
     Dosage: 20 MG QD
  7. VASTAREL ^BIOPHARMA^ (TRIMETAZIDINE HYDROCHLORIDE) [Concomitant]
  8. ALDACTONE [Concomitant]
  9. ACETAMINOPHEN [Concomitant]

REACTIONS (3)
  - BLOOD UREA INCREASED [None]
  - BRADYCARDIA [None]
  - MALAISE [None]
